FAERS Safety Report 6602533-6 (Version None)
Quarter: 2010Q1

REPORT INFORMATION
  Report Type: 
  Country: None (occurrence: None)
  Receive Date: 20100217
  Receipt Date: 20100202
  Transmission Date: 20100710
  Serious: Yes (Death, Hospitalization)
  Sender: FDA-Public Use
  Company Number: 2010000438

PATIENT
  Age: 84 Year
  Sex: Male
  Weight: 86.18 kg

DRUGS (1)
  1. TARCEVA [Suspect]
     Indication: NEOPLASM MALIGNANT
     Dosage: (150 MG, QD), ORAL
     Route: 048

REACTIONS (1)
  - UNEVALUABLE EVENT [None]
